FAERS Safety Report 24952051 (Version 1)
Quarter: 2025Q1

REPORT INFORMATION
  Report Type: Spontaneous
  Country: US (occurrence: None)
  Receive Date: 20250209
  Receipt Date: 20250209
  Transmission Date: 20250409
  Serious: Yes (Life-Threatening, Disabling)
  Sender: FDA-CTU
  Company Number: None

PATIENT
  Age: 47 Year
  Sex: Female

DRUGS (1)
  1. MONTELUKAST [Suspect]
     Active Substance: MONTELUKAST
     Indication: Asthma
     Dosage: OTHER QUANTITY : 1 TABLET(S);?FREQUENCY : AT BEDTIME;?
     Route: 048
     Dates: start: 20250115, end: 20250209

REACTIONS (6)
  - Thinking abnormal [None]
  - Suicidal ideation [None]
  - Sleep disorder [None]
  - Nightmare [None]
  - Agitation [None]
  - Disturbance in attention [None]

NARRATIVE: CASE EVENT DATE: 20250209
